FAERS Safety Report 7442572-9 (Version None)
Quarter: 2011Q2

REPORT INFORMATION
  Report Type: 
  Country: None (occurrence: None)
  Receive Date: 20110428
  Receipt Date: 20110415
  Transmission Date: 20111010
  Serious: Yes (Other)
  Sender: FDA-Public Use
  Company Number: PHFR2011GB02616

PATIENT
  Sex: Male

DRUGS (3)
  1. ZOPICLONE [Suspect]
     Dosage: UNK DF, UNK
  2. ALCOHOL [Suspect]
     Dosage: LARGE QUANTITIES
  3. CLOZARIL [Suspect]
     Indication: SCHIZOPHRENIA
     Dosage: 300 MG, QD
     Route: 048
     Dates: start: 20101123

REACTIONS (1)
  - OVERDOSE [None]
